FAERS Safety Report 18288957 (Version 7)
Quarter: 2022Q4

REPORT INFORMATION
  Report Type: Spontaneous
  Country: US (occurrence: US)
  Receive Date: 20200921
  Receipt Date: 20221212
  Transmission Date: 20230112
  Serious: No
  Sender: FDA-Public Use
  Company Number: US-PFIZER INC-2020360362

PATIENT
  Age: 62 Year
  Sex: Female

DRUGS (1)
  1. IBRANCE [Suspect]
     Active Substance: PALBOCICLIB
     Dosage: UNK

REACTIONS (14)
  - Increased bronchial secretion [Unknown]
  - Productive cough [Unknown]
  - Upper-airway cough syndrome [Unknown]
  - Oral pain [Recovering/Resolving]
  - Stomatitis [Unknown]
  - Platelet count decreased [Unknown]
  - Haematoma [Unknown]
  - Oral infection [Unknown]
  - Skin burning sensation [Unknown]
  - Dry skin [Unknown]
  - Frustration tolerance decreased [Unknown]
  - Movement disorder [Unknown]
  - Malaise [Unknown]
  - Drug intolerance [Unknown]
